FAERS Safety Report 23355848 (Version 1)
Quarter: 2024Q1

REPORT INFORMATION
  Report Type: Spontaneous
  Country: US (occurrence: US)
  Receive Date: 20240102
  Receipt Date: 20240102
  Transmission Date: 20240410
  Serious: No
  Sender: FDA-Public Use
  Company Number: US-SA-SAC20231223000237

PATIENT
  Age: 77 Year
  Sex: Male

DRUGS (16)
  1. DUPIXENT [Suspect]
     Active Substance: DUPILUMAB
     Indication: Dermatitis atopic
     Dosage: 300 MG, QOW
     Route: 058
     Dates: start: 202206
  2. REMERON [Concomitant]
     Active Substance: MIRTAZAPINE
  3. GABAPENTIN [Concomitant]
     Active Substance: GABAPENTIN
  4. METFORMIN HYDROCHLORIDE [Concomitant]
     Active Substance: METFORMIN HYDROCHLORIDE
  5. COENZYME Q10 [Concomitant]
     Active Substance: DIETARY SUPPLEMENT\UBIDECARENONE
  6. TRIAMCINOLONE ACETONIDE [Concomitant]
     Active Substance: TRIAMCINOLONE ACETONIDE
  7. SOTALOL [Concomitant]
     Active Substance: SOTALOL
  8. ELIQUIS [Concomitant]
     Active Substance: APIXABAN
  9. CLARITIN [Concomitant]
     Active Substance: LORATADINE
  10. MINTOX PLUS [Concomitant]
  11. TOVIAZ [Concomitant]
     Active Substance: FESOTERODINE FUMARATE
  12. NITROGLYCERIN [Concomitant]
     Active Substance: NITROGLYCERIN
  13. JARDIANCE [Concomitant]
     Active Substance: EMPAGLIFLOZIN
  14. ISOSORBIDE MONONITRATE [Concomitant]
     Active Substance: ISOSORBIDE MONONITRATE
  15. TRULICITY [Concomitant]
     Active Substance: DULAGLUTIDE
  16. VITAMIN D2 [Concomitant]
     Active Substance: ERGOCALCIFEROL

REACTIONS (7)
  - Dermatitis atopic [Unknown]
  - Pruritus [Not Recovered/Not Resolved]
  - Skin haemorrhage [Recovered/Resolved]
  - Dry skin [Not Recovered/Not Resolved]
  - Rash [Not Recovered/Not Resolved]
  - Skin injury [Recovered/Resolved]
  - Therapeutic response decreased [Unknown]
